FAERS Safety Report 4912924-7 (Version None)
Quarter: 2006Q1

REPORT INFORMATION
  Report Type: 
  Country: None (occurrence: None)
  Receive Date: 20060215
  Receipt Date: 20060213
  Transmission Date: 20060701
  Serious: Yes (Other)
  Sender: FDA-Public Use
  Company Number: US-GLAXOSMITHKLINE-A0593365A

PATIENT
  Age: 89 Year
  Sex: Female

DRUGS (6)
  1. ECOTRIN ADULT LOW STRENGTH TABLETS [Suspect]
     Indication: PROPHYLAXIS
     Route: 048
  2. ISOSORBIDE [Concomitant]
  3. TOPROL [Concomitant]
  4. CALCIUM WITH VITAMIN D [Concomitant]
  5. MULTI-VITAMIN [Concomitant]
  6. GLUCOSAMINE SULFATE [Concomitant]

REACTIONS (5)
  - BASAL CELL CARCINOMA [None]
  - ERYTHEMA [None]
  - IMPAIRED HEALING [None]
  - MALAISE [None]
  - PAIN OF SKIN [None]
